FAERS Safety Report 12488939 (Version 2)
Quarter: 2016Q3

REPORT INFORMATION
  Report Type: Spontaneous
  Country: US (occurrence: US)
  Receive Date: 20160622
  Receipt Date: 20160803
  Transmission Date: 20161109
  Serious: No
  Sender: FDA-Public Use
  Company Number: US-ELI_LILLY_AND_COMPANY-US201606003064

PATIENT
  Sex: Female
  Weight: 128 kg

DRUGS (7)
  1. GABAPENTIN. [Concomitant]
     Active Substance: GABAPENTIN
  2. HUMULIN N [Concomitant]
     Active Substance: INSULIN HUMAN
     Dosage: 70 IU, TID
  3. NORCO [Concomitant]
     Active Substance: ACETAMINOPHEN\HYDROCODONE BITARTRATE
  4. TRULICITY [Suspect]
     Active Substance: DULAGLUTIDE
     Indication: TYPE 2 DIABETES MELLITUS
     Dosage: 0.75 (UNIT UNSPECIFIED), UNKNOWN
     Route: 058
     Dates: start: 20160330, end: 20160402
  5. VALTREX [Concomitant]
     Active Substance: VALACYCLOVIR HYDROCHLORIDE
  6. TRULICITY [Suspect]
     Active Substance: DULAGLUTIDE
     Indication: DIABETES MELLITUS INADEQUATE CONTROL
  7. EMYCIN                             /00020901/ [Concomitant]
     Active Substance: ERYTHROMYCIN

REACTIONS (7)
  - Drug ineffective [Recovering/Resolving]
  - Dizziness [Recovered/Resolved]
  - Vomiting [Recovered/Resolved]
  - Malaise [Recovered/Resolved]
  - Diarrhoea [Recovered/Resolved]
  - Nausea [Recovered/Resolved]
  - Blood glucose fluctuation [Recovered/Resolved]
